FAERS Safety Report 4920578-9 (Version None)
Quarter: 2006Q1

REPORT INFORMATION
  Report Type: 
  Country: None (occurrence: None)
  Receive Date: 20060217
  Receipt Date: 20060208
  Transmission Date: 20060701
  Serious: Yes (Hospitalization)
  Sender: FDA-Public Use
  Company Number: 2006018746

PATIENT
  Age: 58 Year
  Sex: Female

DRUGS (9)
  1. CELEBREX [Suspect]
     Indication: ILL-DEFINED DISORDER
     Dosage: ORAL
     Route: 048
  2. WARFARIN SODIUM [Suspect]
     Indication: CARDIOVASCULAR DISORDER
     Dosage: ORAL
     Route: 048
  3. METOPROLOL SUCCINATE [Suspect]
  4. FUROSEMIDE [Concomitant]
  5. CALCIGRAN FORTE (CALCIUM CARBONATE, COLECALFEROL) [Concomitant]
  6. ZYRTEC [Concomitant]
  7. RAMIPRIL [Concomitant]
  8. PRAVACHOL [Concomitant]
  9. OPTINATA (RISEDRONATE SODIUM) [Concomitant]

REACTIONS (11)
  - ANAEMIA [None]
  - BLOOD ALBUMIN DECREASED [None]
  - CHEST PAIN [None]
  - DECREASED APPETITE [None]
  - GASTRIC ULCER [None]
  - HAEMATOCHEZIA [None]
  - HAEMORRHAGE [None]
  - INTERNATIONAL NORMALISED RATIO INCREASED [None]
  - RED BLOOD CELL COUNT DECREASED [None]
  - VOMITING [None]
  - WEIGHT DECREASED [None]
